FAERS Safety Report 12617823 (Version 1)
Quarter: 2016Q3

REPORT INFORMATION
  Report Type: Spontaneous
  Country: US (occurrence: None)
  Receive Date: 20160802
  Receipt Date: 20160802
  Transmission Date: 20161109
  Serious: Yes (Life-Threatening, Disabling)
  Sender: FDA-Public Use
  Company Number: None

PATIENT
  Age: 35 Year
  Sex: Female
  Weight: 63.5 kg

DRUGS (10)
  1. IRON [Concomitant]
     Active Substance: IRON
  2. PROBIOTICS [Concomitant]
     Active Substance: PROBIOTICS NOS
  3. L-AMMINO ACIDS BLEND [Concomitant]
  4. ASTRAGALUS [Concomitant]
  5. MULTIVITAMIN [Concomitant]
     Active Substance: VITAMINS
  6. B VITAMIN COMPLEX [Concomitant]
  7. ADDERALL [Suspect]
     Active Substance: AMPHETAMINE ASPARTATE\AMPHETAMINE SULFATE\DEXTROAMPHETAMINE SACCHARATE\DEXTROAMPHETAMINE SULFATE
     Indication: ATTENTION DEFICIT/HYPERACTIVITY DISORDER
     Dosage: 2 CAPSULE (S) IN THE MORNING TAKEN BY MOUTH
     Route: 048
  8. IRON CAPRYLIC ACID [Concomitant]
  9. N-ACETL TYROSINE [Concomitant]
  10. DIINDOLYLMETHANE PLUS [Concomitant]

REACTIONS (10)
  - Feeling abnormal [None]
  - Blood zinc decreased [None]
  - Blood calcium decreased [None]
  - Vitamin B complex deficiency [None]
  - Candida infection [None]
  - Cognitive disorder [None]
  - Fatigue [None]
  - Apathy [None]
  - Blood iron decreased [None]
  - Mood swings [None]

NARRATIVE: CASE EVENT DATE: 20160121
